FAERS Safety Report 21087948 (Version 1)
Quarter: 2022Q3

REPORT INFORMATION
  Report Type: Spontaneous
  Country: GB (occurrence: GB)
  Receive Date: 20220715
  Receipt Date: 20220715
  Transmission Date: 20221026
  Serious: Yes (Death, Life-Threatening, Hospitalization, Disabling, Other)
  Sender: FDA-Public Use
  Company Number: GB-MHRA-MED-202206291923477470-TDZVK

PATIENT
  Age: 48 Year
  Sex: Male
  Weight: 74 kg

DRUGS (5)
  1. VENLAFAXINE [Suspect]
     Active Substance: VENLAFAXINE HYDROCHLORIDE
     Indication: Depression
     Dosage: STARTED AT 75MG TWICE DAILY, THEN 150MG ONCE A DAY; ;
     Route: 065
     Dates: start: 20200217
  2. VENLAFAXINE [Suspect]
     Active Substance: VENLAFAXINE HYDROCHLORIDE
     Route: 065
  3. VENLAFAXINE [Suspect]
     Active Substance: VENLAFAXINE HYDROCHLORIDE
     Dosage: UNK
     Route: 065
  4. PROMETHAZINE [Concomitant]
     Active Substance: PROMETHAZINE HYDROCHLORIDE
     Indication: Agitation
     Route: 065
     Dates: start: 20200310
  5. ZOPICLONE [Concomitant]
     Active Substance: ZOPICLONE
     Indication: Insomnia

REACTIONS (14)
  - Medication error [Fatal]
  - Tachycardia [Fatal]
  - Suicide threat [Fatal]
  - Suicide attempt [Fatal]
  - Completed suicide [Fatal]
  - Suicidal ideation [Fatal]
  - Agitation [Fatal]
  - Paranoia [Fatal]
  - Hypertension [Fatal]
  - Mania [Fatal]
  - Abnormal behaviour [Fatal]
  - Suicidal behaviour [Fatal]
  - Hanging [Fatal]
  - Hallucination [Fatal]

NARRATIVE: CASE EVENT DATE: 20200217
